FAERS Safety Report 19995121 (Version 1)
Quarter: 2021Q4

REPORT INFORMATION
  Report Type: Spontaneous
  Country: US (occurrence: US)
  Receive Date: 20211025
  Receipt Date: 20211025
  Transmission Date: 20220303
  Serious: Yes (Other)
  Sender: FDA-Public Use
  Company Number: US-GLAXOSMITHKLINE-US2021GSK217371

PATIENT
  Sex: Male

DRUGS (15)
  1. ZANTAC [Suspect]
     Active Substance: RANITIDINE HYDROCHLORIDE
     Indication: Dyspepsia
     Dosage: UNK UNK, WE
     Route: 065
     Dates: start: 200007, end: 200107
  2. ZANTAC [Suspect]
     Active Substance: RANITIDINE HYDROCHLORIDE
     Indication: Abdominal distension
  3. ZANTAC [Suspect]
     Active Substance: RANITIDINE HYDROCHLORIDE
     Indication: Insomnia
  4. ZANTAC [Suspect]
     Active Substance: RANITIDINE HYDROCHLORIDE
     Indication: Dyspepsia
     Dosage: UNK UNK, WE
     Route: 065
     Dates: start: 200007, end: 200107
  5. ZANTAC [Suspect]
     Active Substance: RANITIDINE HYDROCHLORIDE
     Indication: Abdominal distension
  6. ZANTAC [Suspect]
     Active Substance: RANITIDINE HYDROCHLORIDE
     Indication: Insomnia
  7. RANITIDINE [Suspect]
     Active Substance: RANITIDINE
     Indication: Dyspepsia
     Dosage: UNK, WE
     Route: 065
     Dates: start: 200107, end: 201910
  8. RANITIDINE [Suspect]
     Active Substance: RANITIDINE
     Indication: Abdominal distension
  9. RANITIDINE [Suspect]
     Active Substance: RANITIDINE
     Indication: Insomnia
  10. RANITIDINE [Suspect]
     Active Substance: RANITIDINE
     Indication: Dyspepsia
     Dosage: UNK, WE
     Route: 065
     Dates: start: 200107, end: 201910
  11. RANITIDINE [Suspect]
     Active Substance: RANITIDINE
     Indication: Abdominal distension
  12. RANITIDINE [Suspect]
     Active Substance: RANITIDINE
     Indication: Insomnia
  13. RANITIDINE HYDROCHLORIDE [Suspect]
     Active Substance: RANITIDINE HYDROCHLORIDE
     Indication: Dyspepsia
     Dosage: UNK UNK, WE
     Route: 065
     Dates: start: 200107, end: 201910
  14. RANITIDINE HYDROCHLORIDE [Suspect]
     Active Substance: RANITIDINE HYDROCHLORIDE
     Indication: Abdominal distension
  15. RANITIDINE HYDROCHLORIDE [Suspect]
     Active Substance: RANITIDINE HYDROCHLORIDE
     Indication: Insomnia

REACTIONS (2)
  - Bladder cancer [Unknown]
  - Prostate cancer [Unknown]
